FAERS Safety Report 21937645 (Version 1)
Quarter: 2023Q1

REPORT INFORMATION
  Report Type: Report from Study
  Country: CA (occurrence: None)
  Receive Date: 20230201
  Receipt Date: 20230201
  Transmission Date: 20230417
  Serious: Yes (Other)
  Sender: FDA-Public Use
  Company Number: 2022A330062

PATIENT
  Sex: Male

DRUGS (2)
  1. CALQUENCE [Suspect]
     Active Substance: ACALABRUTINIB
     Indication: Chronic lymphocytic leukaemia
     Route: 048
     Dates: start: 20200603, end: 20220923
  2. CALQUENCE [Suspect]
     Active Substance: ACALABRUTINIB
     Indication: Chronic lymphocytic leukaemia
     Route: 048
     Dates: start: 20200605, end: 20230124

REACTIONS (5)
  - Skin cancer [Recovered/Resolved]
  - Squamous cell carcinoma of skin [Recovered/Resolved]
  - Malignant neoplasm progression [Recovered/Resolved]
  - Off label use [Unknown]
  - Product use issue [Unknown]
